FAERS Safety Report 4360611-9 (Version None)
Quarter: 2004Q2

REPORT INFORMATION
  Report Type: 
  Country: None (occurrence: None)
  Receive Date: 20040519
  Receipt Date: 20021007
  Transmission Date: 20050107
  Serious: Yes (Hospitalization, Disabling)
  Sender: FDA-Public Use
  Company Number: US-MERCK-0210USA00929

PATIENT
  Age: 57 Year
  Sex: Male
  Weight: 98 kg

DRUGS (8)
  1. CELEBREX [Concomitant]
     Route: 065
     Dates: end: 20000327
  2. CATAPRES [Concomitant]
     Route: 065
     Dates: end: 20000810
  3. FLONASE [Concomitant]
     Route: 065
  4. LOPID [Concomitant]
     Indication: BLOOD TRIGLYCERIDES INCREASED
     Route: 065
  5. ROBAXIN [Concomitant]
     Route: 065
  6. REGLAN [Suspect]
     Route: 065
     Dates: end: 20010703
  7. PRILOSEC [Concomitant]
     Route: 065
  8. VIOXX [Suspect]
     Route: 048
     Dates: start: 20000301, end: 20020221

REACTIONS (30)
  - AMNESIA [None]
  - BALANCE DISORDER [None]
  - BLOOD PRESSURE INCREASED [None]
  - CARPAL TUNNEL SYNDROME [None]
  - CEREBELLAR INFARCTION [None]
  - CEREBROVASCULAR ACCIDENT [None]
  - CEREBROVASCULAR DISORDER [None]
  - COGNITIVE DISORDER [None]
  - COGWHEEL RIGIDITY [None]
  - DEAFNESS NEUROSENSORY [None]
  - DIABETES MELLITUS [None]
  - DIABETES MELLITUS NON-INSULIN-DEPENDENT [None]
  - DIABETIC NEUROPATHY [None]
  - DYSTONIA [None]
  - FALL [None]
  - FATIGUE [None]
  - GALLBLADDER DISORDER [None]
  - GLOSSITIS [None]
  - HAEMATOCHEZIA [None]
  - HIATUS HERNIA [None]
  - LOSS OF CONSCIOUSNESS [None]
  - LOW DENSITY LIPOPROTEIN INCREASED [None]
  - MAJOR DEPRESSION [None]
  - NEUROPATHY PERIPHERAL [None]
  - ORTHOSTATIC HYPOTENSION [None]
  - PSEUDODEMENTIA [None]
  - RADICULOPATHY [None]
  - SINUSITIS [None]
  - TREATMENT NONCOMPLIANCE [None]
  - TREMOR [None]
